FAERS Safety Report 8898430 (Version 1)
Quarter: 2012Q4

REPORT INFORMATION
  Report Type: 
  Country: AR (occurrence: AR)
  Receive Date: 20121109
  Receipt Date: 20121109
  Transmission Date: 20130627
  Serious: Yes (Other)
  Sender: FDA-Public Use
  Company Number: AR-AMGEN-ARGSP2012049324

PATIENT
  Age: 41 Year
  Sex: Female

DRUGS (4)
  1. ENBREL [Suspect]
     Indication: RHEUMATOID ARTHRITIS
     Dosage: 50 mg, weekly
     Route: 058
     Dates: start: 20120206
  2. CORTICOSTEROID NOS [Concomitant]
     Dosage: UNK
  3. EUDON [Concomitant]
     Dosage: UNK
  4. DOMPERIDONE [Concomitant]
     Dosage: UNK

REACTIONS (3)
  - Urinary tract infection [Recovered/Resolved]
  - Rheumatoid arthritis [Recovered/Resolved]
  - Anaemia [Not Recovered/Not Resolved]
